FAERS Safety Report 8245217-3 (Version None)
Quarter: 2012Q1

REPORT INFORMATION
  Report Type: 
  Country: None (occurrence: None)
  Receive Date: 20120329
  Receipt Date: 20120323
  Transmission Date: 20120608
  Serious: Yes (Life-Threatening, Hospitalization)
  Sender: FDA-Public Use
  Company Number: PHHY2012DE025869

PATIENT
  Sex: Male
  Weight: 99 kg

DRUGS (6)
  1. NSAID'S [Concomitant]
     Indication: PLATELET AGGREGATION
     Route: 048
  2. ASPIRIN [Concomitant]
     Indication: ARTERIOSCLEROSIS
     Route: 048
  3. SIMVASTATIN [Concomitant]
     Route: 048
     Dates: start: 20070109
  4. DIURETICS [Concomitant]
  5. ONBREZ [Suspect]
     Indication: CHRONIC OBSTRUCTIVE PULMONARY DISEASE
     Dates: start: 20110215
  6. RAMIPRIL [Concomitant]
     Indication: HYPERTENSION
     Route: 048
     Dates: start: 20081217

REACTIONS (3)
  - MYOCARDIAL INFARCTION [None]
  - CHRONIC OBSTRUCTIVE PULMONARY DISEASE [None]
  - ARTERIOSCLEROSIS [None]
